FAERS Safety Report 20333006 (Version 5)
Quarter: 2022Q1

REPORT INFORMATION
  Report Type: Spontaneous
  Country: IT (occurrence: IT)
  Receive Date: 20220113
  Receipt Date: 20220207
  Transmission Date: 20220423
  Serious: Yes (Death, Hospitalization, Other)
  Sender: FDA-Public Use
  Company Number: IT-NOVARTISPH-NVSC2022IT004847

PATIENT
  Age: 52 Year
  Sex: Female

DRUGS (9)
  1. CASPOFUNGIN [Suspect]
     Active Substance: CASPOFUNGIN
     Indication: Antifungal treatment
     Dosage: UNK
     Route: 065
     Dates: start: 2020
  2. VORICONAZOLE [Suspect]
     Active Substance: VORICONAZOLE
     Indication: Antifungal treatment
     Dosage: 6 MG/KG, Q12H ON DAY 1
     Route: 065
     Dates: start: 202008
  3. VORICONAZOLE [Suspect]
     Active Substance: VORICONAZOLE
     Dosage: 4 MG/KG, BID
     Route: 065
     Dates: start: 202008
  4. VORICONAZOLE [Suspect]
     Active Substance: VORICONAZOLE
     Dosage: 200 MG, BID
     Route: 065
     Dates: start: 202008
  5. CEFTOLOZANE SULFATE\TAZOBACTAM SODIUM [Suspect]
     Active Substance: CEFTOLOZANE SULFATE\TAZOBACTAM SODIUM
     Indication: Antibiotic therapy
     Dosage: UNK, Q8H
     Route: 065
     Dates: start: 2020, end: 2020
  6. COLISTIN [Suspect]
     Active Substance: COLISTIN
     Indication: Antibiotic therapy
     Dosage: 9000000 INTERNATIONAL UNIT, TID
     Route: 065
     Dates: start: 2020
  7. CLINDAMYCIN [Suspect]
     Active Substance: CLINDAMYCIN
     Indication: Antibiotic therapy
     Dosage: 300 MILLIGRAM, Q6H (300 MG EVERY 6 H FOR 4 WEEKS)
     Route: 065
     Dates: start: 2020
  8. AVIBACTAM [Suspect]
     Active Substance: AVIBACTAM
     Indication: Antifungal treatment
     Dosage: 2.5 GRAM, TID (2.5 G THREE TIMES A DAY)
     Route: 065
     Dates: start: 202008
  9. AMPHOTERICIN B [Suspect]
     Active Substance: AMPHOTERICIN B
     Indication: Antifungal treatment
     Dosage: 3 MG/KG, QD
     Route: 065

REACTIONS (2)
  - Geotrichum infection [Fatal]
  - Drug ineffective [Unknown]

NARRATIVE: CASE EVENT DATE: 20200801
